FAERS Safety Report 11713157 (Version 1)
Quarter: 2015Q4

REPORT INFORMATION
  Report Type: Spontaneous
  Country: IT (occurrence: IT)
  Receive Date: 20151109
  Receipt Date: 20151109
  Transmission Date: 20160304
  Serious: Yes (Life-Threatening)
  Sender: FDA-Public Use
  Company Number: PHHY2015IT142497

PATIENT
  Age: 25 Year
  Sex: Male

DRUGS (2)
  1. CLARITHROMYCIN SANDOZ [Suspect]
     Active Substance: CLARITHROMYCIN
     Indication: UPPER RESPIRATORY TRACT INFECTION
     Dosage: 187 MG, ONCE/SINGLE
     Route: 048
     Dates: start: 20151001, end: 20151001
  2. CARVEDILOL. [Concomitant]
     Active Substance: CARVEDILOL
     Indication: PRODUCT USED FOR UNKNOWN INDICATION
     Dosage: 6.25 MG, QD
     Route: 065

REACTIONS (10)
  - Genital swelling [Recovered/Resolved]
  - Dyspnoea [Recovered/Resolved]
  - Psychomotor hyperactivity [Recovered/Resolved]
  - Lip swelling [Recovered/Resolved]
  - Rash [Recovered/Resolved]
  - Foaming at mouth [Recovered/Resolved]
  - Pain in extremity [Recovered/Resolved]
  - Restlessness [Recovered/Resolved]
  - Pyrexia [Recovered/Resolved]
  - Mouth swelling [Recovered/Resolved]

NARRATIVE: CASE EVENT DATE: 20151001
